FAERS Safety Report 21333973 (Version 2)
Quarter: 2022Q3

REPORT INFORMATION
  Report Type: Spontaneous
  Country: US (occurrence: US)
  Receive Date: 20220914
  Receipt Date: 20220919
  Transmission Date: 20221026
  Serious: No
  Sender: FDA-Public Use
  Company Number: US-PFIZER INC-PV202200063169

PATIENT
  Age: 75 Year
  Sex: Male

DRUGS (1)
  1. MEKTOVI [Suspect]
     Active Substance: BINIMETINIB
     Indication: Lung neoplasm malignant
     Dosage: 15 MG, 2X/DAY [1 (TABLET) IN THE MORNING AND 1(TABLET) AT NIGHT]

REACTIONS (2)
  - Pruritus [Unknown]
  - Off label use [Unknown]
